FAERS Safety Report 16866898 (Version 2)
Quarter: 2021Q1

REPORT INFORMATION
  Report Type: Report from Study
  Country: DE (occurrence: DE)
  Receive Date: 20190930
  Receipt Date: 20210105
  Transmission Date: 20210419
  Serious: Yes (Hospitalization, Other)
  Sender: FDA-Public Use
  Company Number: DE-AUROBINDO-AUR-APL-2017-07585

PATIENT
  Sex: Female

DRUGS (1)
  1. LIDOCAINE. [Suspect]
     Active Substance: LIDOCAINE
     Indication: RESUSCITATION
     Dosage: 1000 MILLIGRAM, SINGLE
     Route: 042

REACTIONS (5)
  - Hypoxia [Not Recovered/Not Resolved]
  - Medication error [Not Recovered/Not Resolved]
  - Brain injury [Not Recovered/Not Resolved]
  - Coma [Not Recovered/Not Resolved]
  - Overdose [Not Recovered/Not Resolved]

NARRATIVE: CASE EVENT DATE: 2009
